FAERS Safety Report 6456915-6 (Version None)
Quarter: 2009Q4

REPORT INFORMATION
  Report Type: 
  Country: None (occurrence: None)
  Receive Date: 20091125
  Receipt Date: 20090504
  Transmission Date: 20100525
  Serious: No
  Sender: FDA-Public Use
  Company Number: US-AMGEN-KDL345568

PATIENT
  Sex: Male

DRUGS (4)
  1. ENBREL [Suspect]
     Indication: RHEUMATOID ARTHRITIS
     Route: 058
     Dates: start: 20090122
  2. METHOTREXATE [Concomitant]
     Route: 048
  3. PLAQUENIL [Concomitant]
  4. PREDNISONE TAB [Concomitant]

REACTIONS (2)
  - ARTHRALGIA [None]
  - FATIGUE [None]
